FAERS Safety Report 9504262 (Version 1)
Quarter: 2013Q3

REPORT INFORMATION
  Report Type: Spontaneous
  Country: GB (occurrence: GB)
  Receive Date: 20130906
  Receipt Date: 20130906
  Transmission Date: 20140515
  Serious: Yes (Other)
  Sender: FDA-Public Use
  Company Number: GB-GLAXOSMITHKLINE-B0920811A

PATIENT
  Age: 42 Year
  Sex: Female

DRUGS (10)
  1. CLENIL [Suspect]
     Indication: ASTHMA
     Dosage: 100MCG TWICE PER DAY
     Route: 055
     Dates: start: 20130814, end: 20130814
  2. ATENOLOL [Concomitant]
  3. AVAMYS [Concomitant]
  4. BENDROFLUMETHIAZIDE [Concomitant]
  5. CETIRIZINE [Concomitant]
  6. CO-CODAMOL [Concomitant]
  7. DESOGESTREL [Concomitant]
  8. DOMPERIDONE [Concomitant]
  9. PARACETAMOL [Concomitant]
  10. SALBUTAMOL [Concomitant]

REACTIONS (3)
  - Bronchospasm [Unknown]
  - Cough [Recovered/Resolved]
  - Chest discomfort [Recovered/Resolved]
